FAERS Safety Report 25226167 (Version 3)
Quarter: 2025Q2

REPORT INFORMATION
  Report Type: Spontaneous
  Country: CO (occurrence: CO)
  Receive Date: 20250422
  Receipt Date: 20250507
  Transmission Date: 20250716
  Serious: Yes (Death, Hospitalization)
  Sender: BAYER HEALTHCARE PHARMACEUTICALS INC.
  Company Number: CO-BAYER-2025A054877

PATIENT
  Age: 79 Year
  Sex: Male
  Weight: 60 kg

DRUGS (1)
  1. NUBEQA [Suspect]
     Active Substance: DAROLUTAMIDE
     Indication: Prostatic disorder
     Dosage: 600 MG, BID
     Route: 048

REACTIONS (4)
  - Death [Fatal]
  - Urinary tract infection [Not Recovered/Not Resolved]
  - Product availability issue [None]
  - Product use in unapproved indication [None]

NARRATIVE: CASE EVENT DATE: 20250415
